FAERS Safety Report 6276345-X (Version None)
Quarter: 2009Q3

REPORT INFORMATION
  Report Type: 
  Country: None (occurrence: None)
  Receive Date: 20090722
  Receipt Date: 20090714
  Transmission Date: 20100115
  Serious: Yes (Other)
  Sender: FDA-Public Use
  Company Number: ES-JNJFOC-20090608801

PATIENT
  Age: 70 Year
  Sex: Female
  Weight: 64 kg

DRUGS (6)
  1. REMICADE [Suspect]
     Route: 042
  2. REMICADE [Suspect]
     Dosage: NEXT INFUSION PLANNED FOR 12 WEEKS
     Route: 042
  3. REMICADE [Suspect]
     Route: 042
  4. REMICADE [Suspect]
     Route: 042
  5. REMICADE [Suspect]
     Indication: PUSTULAR PSORIASIS
     Route: 042
  6. COZAAR [Concomitant]

REACTIONS (2)
  - CONJUNCTIVAL DISORDER [None]
  - ERYTHEMA MULTIFORME [None]
